FAERS Safety Report 6964613-5 (Version None)
Quarter: 2010Q3

REPORT INFORMATION
  Report Type: 
  Country: None (occurrence: None)
  Receive Date: 20100903
  Receipt Date: 20100831
  Transmission Date: 20110219
  Serious: Yes (Other)
  Sender: FDA-Public Use
  Company Number: US-JNJFOC-20100708015

PATIENT
  Sex: Female
  Weight: 91.63 kg

DRUGS (5)
  1. TYLENOL (CAPLET) [Suspect]
     Route: 048
  2. TYLENOL (CAPLET) [Suspect]
     Indication: ARTHRALGIA
     Dosage: AS NEEDED
     Route: 048
  3. LANTUS [Concomitant]
  4. ASPIRIN [Concomitant]
     Route: 048
  5. DIABETES MEDICATION [Concomitant]

REACTIONS (3)
  - PRODUCT QUALITY ISSUE [None]
  - UTERINE POLYP [None]
  - VAGINAL HAEMORRHAGE [None]
